FAERS Safety Report 4692000-1 (Version None)
Quarter: 2005Q2

REPORT INFORMATION
  Report Type: 
  Country: None (occurrence: None)
  Receive Date: 20050616
  Receipt Date: 20050616
  Transmission Date: 20051028
  Serious: No
  Sender: FDA-Public Use
  Company Number: None

PATIENT
  Age: 44 Year
  Sex: Male
  Weight: 99.8 kg

DRUGS (2)
  1. HEPARIN [Suspect]
     Indication: CHEST PAIN
     Dosage: INFUSION    INTRAVENOU
     Route: 042
     Dates: start: 20050606, end: 20050606
  2. HEPARIN [Suspect]
     Indication: MYOCARDIAL INFARCTION
     Dosage: INFUSION    INTRAVENOU
     Route: 042
     Dates: start: 20050606, end: 20050606

REACTIONS (1)
  - PRIAPISM [None]
